FAERS Safety Report 14259996 (Version 1)
Quarter: 2017Q4

REPORT INFORMATION
  Report Type: Spontaneous
  Country: US (occurrence: US)
  Receive Date: 20171207
  Receipt Date: 20171207
  Transmission Date: 20180321
  Serious: No
  Sender: FDA-Public Use
  Company Number: US-VIFOR (INTERNATIONAL) INC.-VIT-2017-09818

PATIENT
  Age: 60 Year
  Sex: Female
  Weight: 206.57 kg

DRUGS (36)
  1. FLUTICASONE FUROATE~~VILANTEROL TRIFENATATE [Concomitant]
  2. HYDROCODONE-ACETAMINOPHEN [Concomitant]
     Active Substance: ACETAMINOPHEN\HYDROCODONE
  3. NYSTATIN. [Concomitant]
     Active Substance: NYSTATIN
  4. PHENYTOIN SODIUM EXTENDED [Concomitant]
     Active Substance: PHENYTOIN SODIUM
  5. PLAVIX [Concomitant]
     Active Substance: CLOPIDOGREL BISULFATE
  6. PROMETHAZINE HYDROCHLORIDE. [Concomitant]
     Active Substance: PROMETHAZINE HYDROCHLORIDE
  7. ROZEREM [Concomitant]
     Active Substance: RAMELTEON
  8. VELTASSA [Suspect]
     Active Substance: PATIROMER
     Indication: HYPERKALAEMIA
     Route: 048
     Dates: start: 20160505, end: 2017
  9. BESY-BENAZEPRIL HCL [Concomitant]
  10. FOLIC ACID. [Concomitant]
     Active Substance: FOLIC ACID
  11. SODIUM BICARBONATE. [Concomitant]
     Active Substance: SODIUM BICARBONATE
  12. AMLODIPINE [Concomitant]
     Active Substance: AMLODIPINE BESYLATE
  13. IPRATROPIUM BROMIDE. [Concomitant]
     Active Substance: IPRATROPIUM BROMIDE
  14. SERTRALINE HYDROCHLORIDE. [Concomitant]
     Active Substance: SERTRALINE HYDROCHLORIDE
  15. SINGULAIR [Concomitant]
     Active Substance: MONTELUKAST SODIUM
  16. VIMPAT [Concomitant]
     Active Substance: LACOSAMIDE
  17. VELTASSA [Suspect]
     Active Substance: PATIROMER
     Route: 048
     Dates: start: 2017
  18. ALLOPURINOL. [Concomitant]
     Active Substance: ALLOPURINOL
  19. ACETYLSALICYLIC ACID [Concomitant]
     Active Substance: ASPIRIN
  20. CARVEDILOL. [Concomitant]
     Active Substance: CARVEDILOL
  21. DILANTIN [Concomitant]
     Active Substance: PHENYTOIN
  22. HYDRALAZINE HYDROCHLORIDE. [Concomitant]
     Active Substance: HYDRALAZINE HYDROCHLORIDE
  23. ISOSORBIDE MONONITRATE ER [Concomitant]
     Active Substance: ISOSORBIDE MONONITRATE
  24. KEPPRA [Concomitant]
     Active Substance: LEVETIRACETAM
  25. LANTUS [Concomitant]
     Active Substance: INSULIN GLARGINE
  26. NITRO-DUR [Concomitant]
     Active Substance: NITROGLYCERIN
  27. DOXYCYCLINE HYCLATE. [Concomitant]
     Active Substance: DOXYCYCLINE HYCLATE
  28. OMEPRAZOLE. [Concomitant]
     Active Substance: OMEPRAZOLE
  29. ERGOCALCIFEROL. [Concomitant]
     Active Substance: ERGOCALCIFEROL
  30. COREG [Concomitant]
     Active Substance: CARVEDILOL
  31. HUMALOG [Concomitant]
     Active Substance: INSULIN LISPRO
  32. PHENYTEK [Concomitant]
     Active Substance: PHENYTOIN SODIUM
  33. CLOPIDOGREL BISULFATE. [Concomitant]
     Active Substance: CLOPIDOGREL BISULFATE
  34. FUROSEMIDE. [Concomitant]
     Active Substance: FUROSEMIDE
  35. FUROSEMIDE. [Concomitant]
     Active Substance: FUROSEMIDE
  36. LASIX [Concomitant]
     Active Substance: FUROSEMIDE

REACTIONS (4)
  - Malaise [Recovered/Resolved]
  - General physical condition abnormal [Recovered/Resolved]
  - Drug dose omission [Unknown]
  - Gastroenteritis viral [Recovered/Resolved]

NARRATIVE: CASE EVENT DATE: 201709
